FAERS Safety Report 6652285-9 (Version None)
Quarter: 2010Q1

REPORT INFORMATION
  Report Type: 
  Country: None (occurrence: None)
  Receive Date: 20100323
  Receipt Date: 20100305
  Transmission Date: 20100710
  Serious: Yes (Hospitalization, Other)
  Sender: FDA-Public Use
  Company Number: 1-21839373

PATIENT
  Age: 56 Year
  Sex: Male

DRUGS (1)
  1. WARFARIN SODIUM [Suspect]
     Indication: THROMBOSIS PROPHYLAXIS
     Dosage: , ONCE DAILY, ORAL
     Route: 048
     Dates: start: 20100112, end: 20100209

REACTIONS (2)
  - CEREBRAL ARTERY THROMBOSIS [None]
  - TRANSIENT ISCHAEMIC ATTACK [None]
